FAERS Safety Report 15740490 (Version 1)
Quarter: 2018Q4

REPORT INFORMATION
  Report Type: Spontaneous
  Country: JP (occurrence: JP)
  Receive Date: 20181219
  Receipt Date: 20181219
  Transmission Date: 20190205
  Serious: Yes (Other)
  Sender: FDA-Public Use
  Company Number: JP-PFIZER INC-2018514874

PATIENT
  Age: 80 Year
  Sex: Male

DRUGS (7)
  1. PLETAL [Concomitant]
     Active Substance: CILOSTAZOL
     Route: 048
  2. GABAPEN 200MG [Suspect]
     Active Substance: GABAPENTIN
     Indication: PAIN IN EXTREMITY
     Dosage: 1800 MG, UNK
     Route: 048
  3. PARIET [Concomitant]
     Active Substance: RABEPRAZOLE SODIUM
     Route: 048
  4. PRAZAXA [Concomitant]
     Active Substance: DABIGATRAN ETEXILATE MESYLATE
     Route: 048
  5. MICARDIS [Concomitant]
     Active Substance: TELMISARTAN
     Route: 048
  6. HARNAL [Concomitant]
     Active Substance: TAMSULOSIN HYDROCHLORIDE
     Route: 048
  7. URITOS [Concomitant]
     Active Substance: IMIDAFENACIN
     Route: 048

REACTIONS (4)
  - Blood pressure decreased [Recovering/Resolving]
  - Blood pressure increased [Unknown]
  - Fall [Recovering/Resolving]
  - Product use in unapproved indication [Unknown]

NARRATIVE: CASE EVENT DATE: 20181212
